FAERS Safety Report 15863932 (Version 2)
Quarter: 2019Q1

REPORT INFORMATION
  Report Type: Spontaneous
  Country: JP (occurrence: JP)
  Receive Date: 20190124
  Receipt Date: 20190207
  Transmission Date: 20190417
  Serious: Yes (Death)
  Sender: FDA-Public Use
  Company Number: JP-NAPPMUNDI-GBR-2019-0063624

PATIENT
  Sex: Female

DRUGS (3)
  1. LYRICA [Concomitant]
     Active Substance: PREGABALIN
     Dosage: 100 MG, DAILY
     Dates: start: 201808, end: 20181117
  2. CALONAL [Concomitant]
     Active Substance: ACETAMINOPHEN
     Dosage: 800 MG, DAILY
     Dates: start: 20181031, end: 20181117
  3. NORSPAN [Suspect]
     Active Substance: BUPRENORPHINE
     Indication: INTERVERTEBRAL DISC PROTRUSION
     Dosage: 10 MCG, Q1H (STRENGTH 10 MG)
     Route: 062
     Dates: start: 20181114, end: 20181117

REACTIONS (1)
  - Hypothermia [Fatal]

NARRATIVE: CASE EVENT DATE: 20181117
